FAERS Safety Report 14033442 (Version 2)
Quarter: 2017Q4

REPORT INFORMATION
  Report Type: Spontaneous
  Country: CN (occurrence: CN)
  Receive Date: 20171003
  Receipt Date: 20171122
  Transmission Date: 20180321
  Serious: Yes (Hospitalization)
  Sender: FDA-Public Use
  Company Number: CN-CIPLA LTD.-2017CN17682

PATIENT

DRUGS (2)
  1. SODIUM CHLORIDE. [Concomitant]
     Active Substance: SODIUM CHLORIDE
     Indication: URINARY TRACT INFECTION
     Dosage: 2 ML/MIN
     Dates: start: 2014, end: 2014
  2. LEVOFLOXACIN. [Suspect]
     Active Substance: LEVOFLOXACIN
     Indication: URINARY TRACT INFECTION
     Dosage: 0.25 G, UNK
     Dates: start: 2014, end: 2014

REACTIONS (2)
  - Paralysis [Recovered/Resolved]
  - Radial nerve palsy [Recovered/Resolved]

NARRATIVE: CASE EVENT DATE: 2014
